FAERS Safety Report 12295088 (Version 1)
Quarter: 2016Q2

REPORT INFORMATION
  Report Type: Spontaneous
  Country: US (occurrence: US)
  Receive Date: 20160422
  Receipt Date: 20160422
  Transmission Date: 20160815
  Serious: Yes (Other)
  Sender: FDA-Public Use
  Company Number: DE-ASTRAZENECA-2016SE01362

PATIENT
  Age: 78 Year
  Sex: Male

DRUGS (11)
  1. HYDROCHLOROTHIAZIDE. [Concomitant]
     Active Substance: HYDROCHLOROTHIAZIDE
  2. FLUTICASONE PROPIONATE. [Concomitant]
     Active Substance: FLUTICASONE PROPIONATE
  3. OMEPRAZOLE. [Suspect]
     Active Substance: OMEPRAZOLE
     Indication: GASTROOESOPHAGEAL REFLUX DISEASE
     Dosage: 20 MG TWO TIMES A DAY (NON-BAYER)
     Route: 048
  4. ATORVASTATIN [Concomitant]
     Active Substance: ATORVASTATIN
  5. OMEPRAZOLE. [Suspect]
     Active Substance: OMEPRAZOLE
     Indication: DUODENAL ULCER
     Dosage: 20 MG TWO TIMES A DAY (NON-BAYER)
     Route: 048
  6. OMEPRAZOLE. [Suspect]
     Active Substance: OMEPRAZOLE
     Indication: DYSPEPSIA
     Dosage: 20 MG TWO TIMES A DAY (NON-BAYER)
     Route: 048
  7. METOPROLOL. [Concomitant]
     Active Substance: METOPROLOL
  8. ALBUTEROL. [Concomitant]
     Active Substance: ALBUTEROL
  9. OMEPRAZOLE. [Suspect]
     Active Substance: OMEPRAZOLE
     Indication: DUODENAL ULCER
     Dosage: 20 MG TWO TIMES A DAY (NON-BAYER)
     Route: 048
  10. SALMETEROL [Concomitant]
     Active Substance: SALMETEROL
  11. LISINOPRIL. [Concomitant]
     Active Substance: LISINOPRIL

REACTIONS (1)
  - Carcinoid tumour of the stomach [Unknown]
